FAERS Safety Report 7961523-1 (Version None)
Quarter: 2011Q4

REPORT INFORMATION
  Report Type: 
  Country: None (occurrence: None)
  Receive Date: 20111202
  Receipt Date: 20111125
  Transmission Date: 20120403
  Serious: Yes (Other)
  Sender: FDA-Public Use
  Company Number: AUR-APL-2011-04290

PATIENT
  Age: 61 Year
  Sex: Female

DRUGS (16)
  1. RAMIPRIL [Suspect]
     Indication: BLOOD PRESSURE
     Dosage: (2.5 MG) ; (0.75 MG)
     Dates: start: 20101206, end: 20101216
  2. RAMIPRIL [Suspect]
     Indication: BLOOD PRESSURE
     Dosage: (2.5 MG) ; (0.75 MG)
     Dates: start: 20101118, end: 20101216
  3. DILTIAZEM [Suspect]
     Indication: PRODUCT USED FOR UNKNOWN INDICATION
     Dosage: (200 MG),ORAL
     Route: 048
     Dates: start: 20110106
  4. DILTIAZEM [Suspect]
     Indication: PRODUCT USED FOR UNKNOWN INDICATION
     Dosage: (200 MG),ORAL
     Route: 048
     Dates: end: 20101006
  5. DILTIAZEM HYDROCHLORIDE [Suspect]
     Indication: PRODUCT USED FOR UNKNOWN INDICATION
     Dosage: (200 MG,1 D),ORAL
     Route: 048
     Dates: start: 20101006, end: 20101104
  6. DANDELION (TARAXACUM OFFICINALE) [Concomitant]
  7. BISOPROLOL FUMARATE [Suspect]
     Indication: PRODUCT USED FOR UNKNOWN INDICATION
     Dates: start: 20101001, end: 20101006
  8. ASPIRIN [Concomitant]
  9. SOTALOL HCL [Concomitant]
  10. SIMVASTATIN [Concomitant]
  11. INDAPAMIDE [Concomitant]
  12. CHAPARRAL DANDELION BLEND (CHAPARRAL DANDELION BLEND) [Concomitant]
  13. BENDROFLUMETHIAZIDE (BENDROFLUMETHIAZIDE) [Concomitant]
  14. HERBAL MEDICATION (HERBALIFE PRODUCTS) [Concomitant]
  15. LOSARTAN POTASSIUM [Concomitant]
  16. MEBEVERINE (MEBEVERINE) [Concomitant]

REACTIONS (5)
  - MIGRAINE [None]
  - BLOOD PRESSURE INCREASED [None]
  - DRUG HYPERSENSITIVITY [None]
  - CEREBRAL HAEMATOMA [None]
  - FEELING ABNORMAL [None]
